FAERS Safety Report 4336682-2 (Version None)
Quarter: 2004Q2

REPORT INFORMATION
  Report Type: 
  Country: None (occurrence: None)
  Receive Date: 20040408
  Receipt Date: 20040401
  Transmission Date: 20050107
  Serious: Yes (Hospitalization)
  Sender: FDA-Public Use
  Company Number: 2004206925US

PATIENT
  Age: 33 Year
  Sex: Male

DRUGS (5)
  1. DELTASONE [Suspect]
     Indication: RHEUMATOID ARTHRITIS
     Dosage: 10 MG, 1 IN 1 DAYS, ORAL
     Route: 048
     Dates: start: 20020101
  2. ENBREL [Suspect]
     Dosage: 25 MG, 2 IN 1 WEEKS, SUBCUTANEOUS
     Route: 058
     Dates: start: 20030602, end: 20040316
  3. METHOTREXATE [Suspect]
     Dosage: 10 MG, 1 IN 1 WEEKS, ORAL
     Route: 048
     Dates: start: 20040101, end: 20040316
  4. VICODIN [Concomitant]
  5. FOLIC ACID [Concomitant]

REACTIONS (4)
  - CONDITION AGGRAVATED [None]
  - HYPOTENSION [None]
  - PYREXIA [None]
  - RHEUMATOID ARTHRITIS [None]
